FAERS Safety Report 8827711 (Version 1)
Quarter: 2012Q4

REPORT INFORMATION
  Report Type: 
  Country: CN (occurrence: CN)
  Receive Date: 20121005
  Receipt Date: 20121005
  Transmission Date: 20130627
  Serious: Yes (Hospitalization)
  Sender: FDA-Public Use
  Company Number: CN-JNJFOC-20120912635

PATIENT
  Age: 2 Year
  Sex: Male

DRUGS (1)
  1. INFANTS TYLENOL [Suspect]
     Indication: PYREXIA
     Dosage: 1.5 mL of 1.5 g/15 mL
     Route: 048
     Dates: start: 20040914

REACTIONS (1)
  - Chromaturia [Recovered/Resolved]
